FAERS Safety Report 21041116 (Version 1)
Quarter: 2022Q3

REPORT INFORMATION
  Report Type: Other
  Country: GB (occurrence: GB)
  Receive Date: 20220705
  Receipt Date: 20220705
  Transmission Date: 20221027
  Serious: Yes (Other)
  Sender: FDA-Public Use
  Company Number: GB-CELLTRION INC.-2022GB010273

PATIENT

DRUGS (2)
  1. RITUXIMAB [Suspect]
     Active Substance: RITUXIMAB
     Indication: Rheumatoid arthritis
     Dosage: 1000MG; ;
     Dates: start: 20220624, end: 20220624
  2. RITUXIMAB [Suspect]
     Active Substance: RITUXIMAB
     Dosage: 1000MG; ;
     Dates: start: 20220624, end: 20220624

REACTIONS (2)
  - Ear pruritus [Unknown]
  - Throat irritation [Recovered/Resolved]

NARRATIVE: CASE EVENT DATE: 20220624
